FAERS Safety Report 6244923-X (Version None)
Quarter: 2009Q2

REPORT INFORMATION
  Report Type: 
  Country: None (occurrence: None)
  Receive Date: 20090625
  Receipt Date: 20090616
  Transmission Date: 20091009
  Serious: Yes (Death)
  Sender: FDA-Public Use
  Company Number: PHHY2009JP16131

PATIENT
  Sex: Female
  Weight: 38 kg

DRUGS (12)
  1. ICL670A ICL+DISTAB [Suspect]
     Indication: MYELODYSPLASTIC SYNDROME
     Dosage: 500 MG/DAY
     Route: 048
     Dates: start: 20081204, end: 20081217
  2. ALLELOCK [Concomitant]
     Dosage: 10 MG, UNK
     Route: 048
     Dates: start: 20081009, end: 20090127
  3. CINAL [Concomitant]
     Dosage: 3 G, UNK
     Route: 048
     Dates: start: 20070809, end: 20090127
  4. ISALON [Concomitant]
     Dosage: 300 MG, UNK
     Route: 048
     Dates: start: 20081101, end: 20090127
  5. ADONA [Concomitant]
     Dosage: 10 MG, UNK
     Route: 048
     Dates: start: 20081101, end: 20090127
  6. BAKTAR [Concomitant]
     Dosage: 4 G, UNK
     Dates: start: 20081101, end: 20090127
  7. TAKEPRON [Concomitant]
     Dosage: 15 MG, UNK
     Route: 048
     Dates: start: 20081205, end: 20090129
  8. HALCION [Concomitant]
     Dosage: 0.25 MG, UNK
     Dates: start: 20081101, end: 20090127
  9. MEROPEN [Concomitant]
     Dosage: 1000 MG, UNK
     Route: 042
     Dates: start: 20081205, end: 20081208
  10. DEXALTIN [Concomitant]
     Dosage: 2 MG, UNK
     Route: 061
     Dates: start: 20081205, end: 20090129
  11. DICLOFENAC SODIUM [Concomitant]
     Indication: ABDOMINAL PAIN
     Dosage: 25 MG, UNK
     Route: 054
     Dates: start: 20081205, end: 20090129
  12. RED BLOOD CELLS, LEUCOCYTE DEPLETED [Concomitant]
     Dosage: 2 UNITS EVERY WEEK OR TWO WEEKS
     Dates: start: 20081204, end: 20090129

REACTIONS (3)
  - ASTHENIA [None]
  - PANCYTOPENIA [None]
  - PNEUMONIA [None]
